FAERS Safety Report 9752982 (Version 2)
Quarter: 2013Q4

REPORT INFORMATION
  Report Type: Spontaneous
  Country: FR (occurrence: FR)
  Receive Date: 20131213
  Receipt Date: 20131213
  Transmission Date: 20140711
  Serious: Yes (Hospitalization)
  Sender: FDA-Public Use
  Company Number: FR-JNJFOC-20131204707

PATIENT
  Age: 38 Year
  Sex: Male

DRUGS (3)
  1. INFLIXIMAB, RECOMBINANT [Suspect]
     Indication: COLITIS ULCERATIVE
     Route: 042
     Dates: start: 20130919
  2. INFLIXIMAB, RECOMBINANT [Suspect]
     Indication: COLITIS ULCERATIVE
     Route: 042
  3. INFLIXIMAB, RECOMBINANT [Suspect]
     Indication: COLITIS ULCERATIVE
     Route: 042
     Dates: start: 201304

REACTIONS (2)
  - Hepatitis cholestatic [Not Recovered/Not Resolved]
  - Drug-induced liver injury [Unknown]
